FAERS Safety Report 13755417 (Version 1)
Quarter: 2017Q3

REPORT INFORMATION
  Report Type: Spontaneous
  Country: US (occurrence: US)
  Receive Date: 20170714
  Receipt Date: 20170714
  Transmission Date: 20171127
  Serious: No
  Sender: FDA-Public Use
  Company Number: US-PFIZER INC-2017305350

PATIENT
  Age: 53 Year
  Sex: Female
  Weight: 120.2 kg

DRUGS (16)
  1. EZETIMIBE. [Concomitant]
     Active Substance: EZETIMIBE
     Indication: HYPERTENSION
     Dosage: 10MG ONE TABLET ONCE A DAY BY MOUTH
     Route: 048
  2. FOLIC ACID. [Concomitant]
     Active Substance: FOLIC ACID
     Indication: GASTROOESOPHAGEAL REFLUX DISEASE
     Dosage: 1MG TABLET ONE A DAY
     Dates: start: 20161007
  3. CARVEDILOL. [Concomitant]
     Active Substance: CARVEDILOL
     Indication: HYPERTENSION
     Dosage: 25MG ONE AND HALF TABLETS TWICE A DAY BY MOUTH
     Route: 048
  4. VITAMIN D2 [Concomitant]
     Active Substance: ERGOCALCIFEROL
     Indication: IMMUNE SYSTEM DISORDER
     Dosage: 50,000 UNITS (IU) CAPSULE ONE PER WEEK BY MOUTH
     Route: 048
     Dates: start: 20170515
  5. SPIRONOLACTONE. [Concomitant]
     Active Substance: SPIRONOLACTONE
     Indication: HYPERTENSION
     Dosage: 25MG TABLET ONCE A DAY
  6. CALCIUM PLUS VITAMIN D3 [Concomitant]
     Indication: SUPPLEMENTATION THERAPY
     Dosage: 600MG ONE PER DAY
  7. BAYER ASPIRIN [Concomitant]
     Active Substance: ASPIRIN
     Dosage: 81MG TABLET ONCE A DAY BY MOUTH
     Route: 048
  8. AMLODIPINE BESYLATE. [Concomitant]
     Active Substance: AMLODIPINE BESYLATE
     Indication: HYPERTENSION
     Dosage: 10MG TABET ONCE A DAY BY MOUTH
     Route: 048
  9. CLONIDINE HCL [Concomitant]
     Active Substance: CLONIDINE HYDROCHLORIDE
     Indication: HYPERTENSION
     Dosage: 0.1MG TABLET TWICE A DAY BY MOUTH
     Route: 048
  10. XELJANZ XR [Suspect]
     Active Substance: TOFACITINIB CITRATE
     Indication: RHEUMATOID ARTHRITIS
     Dosage: 11MG TABLET TWICE A DAY BY MOUTH
     Route: 048
     Dates: start: 201706
  11. LOSARTAN POTASSIUM. [Concomitant]
     Active Substance: LOSARTAN POTASSIUM
     Indication: HYPERTENSION
     Dosage: 100MG TABLET ONCE A DAY
  12. LORATADINE. [Concomitant]
     Active Substance: LORATADINE
     Indication: HYPERTENSION
     Dosage: 10MG TABLET ONCE A DAY BY MOUTH
     Route: 048
  13. ATORVASTATIN [Concomitant]
     Active Substance: ATORVASTATIN
     Indication: HYPERTENSION
     Dosage: 80MG ONCE A DAY TABLET BY MOUTH
     Route: 048
  14. DEXILANT [Concomitant]
     Active Substance: DEXLANSOPRAZOLE
     Indication: RHEUMATOID ARTHRITIS
     Dosage: 60MG CAPSULE ONCE A DAY
  15. LYRICA [Concomitant]
     Active Substance: PREGABALIN
     Indication: RHEUMATOID ARTHRITIS
     Dosage: 50MG 4 CAPSULES AT BEDTIME
  16. HYDROCHLOROTHIAZIDE. [Concomitant]
     Active Substance: HYDROCHLOROTHIAZIDE
     Indication: HYPERTENSION
     Dosage: 25MG TAB ONCE A DAY BY MOUTH
     Route: 048

REACTIONS (3)
  - Product use issue [Unknown]
  - Pain [Unknown]
  - Muscular weakness [Not Recovered/Not Resolved]

NARRATIVE: CASE EVENT DATE: 201706
